FAERS Safety Report 10343416 (Version 1)
Quarter: 2014Q3

REPORT INFORMATION
  Report Type: Spontaneous
  Country: FR (occurrence: FR)
  Receive Date: 20140725
  Receipt Date: 20140725
  Transmission Date: 20150326
  Serious: Yes (Life-Threatening)
  Sender: FDA-Public Use
  Company Number: FR-ASTRAZENECA-2014SE53530

PATIENT
  Age: 29413 Day
  Sex: Female

DRUGS (9)
  1. ATARAX [Suspect]
     Active Substance: HYDROXYZINE\HYDROXYZINE HYDROCHLORIDE
     Route: 048
     Dates: start: 20140623
  2. HUMALOG [Concomitant]
     Active Substance: INSULIN LISPRO
  3. ATROVENT [Suspect]
     Active Substance: IPRATROPIUM BROMIDE
     Indication: CHRONIC OBSTRUCTIVE PULMONARY DISEASE
     Route: 049
     Dates: start: 20140624, end: 20140624
  4. LEVOTHYROX [Concomitant]
     Active Substance: LEVOTHYROXINE
     Route: 048
  5. PULMICORT TURBUHALER [Suspect]
     Active Substance: BUDESONIDE
     Indication: CHRONIC OBSTRUCTIVE PULMONARY DISEASE
     Route: 049
     Dates: start: 20140624, end: 20140624
  6. BRICANYL [Suspect]
     Active Substance: TERBUTALINE SULFATE
     Indication: CHRONIC OBSTRUCTIVE PULMONARY DISEASE
     Dosage: 5 MG/2ML, ONE DOSAGE FORM DAILY
     Route: 049
     Dates: start: 20140624, end: 20140624
  7. LANTUS [Concomitant]
     Active Substance: INSULIN GLARGINE
  8. STILNOX [Concomitant]
     Active Substance: ZOLPIDEM TARTRATE
  9. SOLUPRED [Suspect]
     Active Substance: PREDNISOLONE
     Route: 048
     Dates: start: 20140623

REACTIONS (3)
  - Shock [Recovered/Resolved]
  - Bronchospasm [Recovered/Resolved]
  - Vomiting [Unknown]

NARRATIVE: CASE EVENT DATE: 20140624
